FAERS Safety Report 14718492 (Version 1)
Quarter: 2018Q2

REPORT INFORMATION
  Report Type: Spontaneous
  Country: US (occurrence: US)
  Receive Date: 20180404
  Receipt Date: 20180404
  Transmission Date: 20180711
  Serious: No
  Sender: FDA-Public Use
  Company Number: US-JNJFOC-20180327303

PATIENT
  Age: 7 Decade
  Sex: Female
  Weight: 73.48 kg

DRUGS (2)
  1. REMICADE [Suspect]
     Active Substance: INFLIXIMAB
     Indication: GRANULOMA ANNULARE
     Route: 042
     Dates: start: 201703, end: 2017
  2. REMICADE [Suspect]
     Active Substance: INFLIXIMAB
     Indication: GRANULOMA ANNULARE
     Route: 042
     Dates: start: 2017

REACTIONS (7)
  - Depression [Recovered/Resolved]
  - Granuloma annulare [Not Recovered/Not Resolved]
  - Nasopharyngitis [Not Recovered/Not Resolved]
  - Off label use [Unknown]
  - Product use in unapproved indication [Unknown]
  - Adverse event [Unknown]
  - Weight increased [Unknown]

NARRATIVE: CASE EVENT DATE: 2017
